FAERS Safety Report 4721253-6 (Version None)
Quarter: 2005Q3

REPORT INFORMATION
  Report Type: 
  Country: None (occurrence: None)
  Receive Date: 20050720
  Receipt Date: 20050707
  Transmission Date: 20060218
  Serious: Yes (Other)
  Sender: FDA-Public Use
  Company Number: 033-7

PATIENT
  Age: 70 Year
  Sex: Male

DRUGS (3)
  1. TEVETEN HCT [Suspect]
     Indication: HYPERTENSION
     Dates: start: 20041129, end: 20041230
  2. LOSARTAN POTASSIUM [Concomitant]
  3. DILTIAZEM HYDROCHLORIDE [Concomitant]

REACTIONS (4)
  - ANGINA PECTORIS [None]
  - DYSPNOEA [None]
  - PALPITATIONS [None]
  - TACHYCARDIA [None]
